FAERS Safety Report 9801149 (Version 1)
Quarter: 2014Q1

REPORT INFORMATION
  Report Type: Spontaneous
  Country: US (occurrence: US)
  Receive Date: 20140107
  Receipt Date: 20140107
  Transmission Date: 20141002
  Serious: Yes (Hospitalization)
  Sender: FDA-Public Use
  Company Number: US-PFIZER INC-2014001285

PATIENT
  Age: 56 Year
  Sex: Female
  Weight: 122.45 kg

DRUGS (3)
  1. ARTHROTEC [Suspect]
     Indication: ARTHRITIS
     Dosage: 200UG/75MG, 2X/DAY
     Route: 048
     Dates: end: 201307
  2. ARTHROTEC [Suspect]
     Dosage: UNK, 2X/DAY
     Route: 048
     Dates: start: 201308
  3. ATENOLOL [Concomitant]
     Dosage: UNK

REACTIONS (1)
  - Musculoskeletal disorder [Unknown]
